FAERS Safety Report 6940732-4 (Version None)
Quarter: 2010Q3

REPORT INFORMATION
  Report Type: 
  Country: None (occurrence: None)
  Receive Date: 20100825
  Receipt Date: 20090707
  Transmission Date: 20110219
  Serious: No
  Sender: FDA-Public Use
  Company Number: US-MYLANLABS-2009S1012169

PATIENT
  Age: 94 Year
  Sex: Female

DRUGS (14)
  1. TEMAZEPAM [Suspect]
     Indication: INSOMNIA
     Dates: start: 20080101, end: 20090616
  2. TEMAZEPAM [Suspect]
     Dates: start: 20090622
  3. METOPROLOL [Concomitant]
  4. PRILOSEC [Concomitant]
  5. OXYBUTIN [Concomitant]
  6. ASPIRIN [Concomitant]
  7. ISOSORBID /00586303/ [Concomitant]
  8. GALANTAMINE [Concomitant]
  9. NAMENDA [Concomitant]
  10. IBUPROFEN [Concomitant]
  11. FUROSEMIDE [Concomitant]
  12. NITROFURANTOIN [Concomitant]
  13. CITALOPRAM [Concomitant]
  14. VITAMINS [Concomitant]

REACTIONS (2)
  - DRUG EFFECT DECREASED [None]
  - INSOMNIA [None]
